FAERS Safety Report 10098368 (Version 2)
Quarter: 2014Q2

REPORT INFORMATION
  Report Type: Spontaneous
  Country: US (occurrence: US)
  Receive Date: 20140423
  Receipt Date: 20140507
  Transmission Date: 20141212
  Serious: No
  Sender: FDA-Public Use
  Company Number: US-PFIZER INC-2014109140

PATIENT
  Age: 87 Year
  Sex: Male
  Weight: 111 kg

DRUGS (2)
  1. GLIPIZIDE XL [Suspect]
     Indication: BLOOD GLUCOSE INCREASED
     Dosage: UNK
     Dates: start: 20120929
  2. GLIPIZIDE XL [Suspect]
     Indication: GLYCOSYLATED HAEMOGLOBIN INCREASED

REACTIONS (2)
  - Drug ineffective [Unknown]
  - Blood pressure abnormal [Unknown]
